FAERS Safety Report 18916316 (Version 1)
Quarter: 2021Q1

REPORT INFORMATION
  Report Type: Spontaneous
  Country: US (occurrence: US)
  Receive Date: 20210219
  Receipt Date: 20210219
  Transmission Date: 20210420
  Serious: No
  Sender: FDA-Public Use
  Company Number: US-BAYER-2021-061501

PATIENT
  Age: 27 Year
  Sex: Female

DRUGS (1)
  1. SKYLA [Suspect]
     Active Substance: LEVONORGESTREL
     Indication: CONTRACEPTION
     Dosage: 14 ?G PER DAY CONTINUOUSLY
     Route: 015
     Dates: start: 20210210, end: 20210210

REACTIONS (4)
  - Post procedural discomfort [None]
  - Procedural pain [None]
  - Complication of device insertion [None]
  - Device deployment issue [None]

NARRATIVE: CASE EVENT DATE: 20210210
